FAERS Safety Report 6967467-6 (Version None)
Quarter: 2010Q3

REPORT INFORMATION
  Report Type: 
  Country: None (occurrence: None)
  Receive Date: 20100901
  Receipt Date: 20100821
  Transmission Date: 20110219
  Serious: Yes (Hospitalization)
  Sender: FDA-Public Use
  Company Number: AUR-APL-2010-02093

PATIENT
  Age: 36 Year
  Sex: Male
  Weight: 78 kg

DRUGS (9)
  1. CIPROFLOXACIN [Suspect]
     Indication: INTERVERTEBRAL DISCITIS
     Dosage: 500MG, TWICE DAILY, ORAL
     Route: 048
     Dates: start: 20100706, end: 20100810
  2. TEICOPLANIN [Suspect]
     Indication: INTERVERTEBRAL DISCITIS
     Dosage: 1G, DAILY, IV
     Route: 042
     Dates: start: 20100727, end: 20100810
  3. BACLOFEN [Concomitant]
  4. DICLOFENAC [Concomitant]
  5. DOCUSATE SODIUM [Concomitant]
  6. NULYTELY [Concomitant]
  7. ACETAMINOPHEN [Concomitant]
  8. SENNA [Concomitant]
  9. VANCOMYCIN [Concomitant]

REACTIONS (4)
  - DRUG LEVEL BELOW THERAPEUTIC [None]
  - LYMPHOCYTE COUNT DECREASED [None]
  - NEUTROPENIA [None]
  - WHITE BLOOD CELL COUNT DECREASED [None]
